FAERS Safety Report 5896711-1 (Version None)
Quarter: 2008Q3

REPORT INFORMATION
  Report Type: 
  Country: None (occurrence: None)
  Receive Date: 20080924
  Receipt Date: 20071106
  Transmission Date: 20090109
  Serious: Yes (Other)
  Sender: FDA-Public Use
  Company Number: US-BAYER-200713868BWH

PATIENT
  Age: 57 Year
  Sex: Female

DRUGS (8)
  1. AVELOX [Suspect]
     Indication: BRONCHITIS
     Dosage: TOTAL DAILY DOSE: 400 MG  UNIT DOSE: 400 MG
     Route: 048
     Dates: start: 20071008, end: 20071008
  2. LIPITOR [Concomitant]
  3. LISINOPRIL HCT [Concomitant]
  4. HYDROCODONE BITARTRATE + ACETAMINOPHEN [Concomitant]
  5. ALBUTEROL [Concomitant]
  6. SINGULAIR [Concomitant]
  7. CELEXA [Concomitant]
  8. AZMACORT [Concomitant]

REACTIONS (3)
  - ANAPHYLACTIC REACTION [None]
  - DYSPNOEA [None]
  - GENERALISED ERYTHEMA [None]
